FAERS Safety Report 8651839 (Version 2)
Quarter: 2013Q1

REPORT INFORMATION
  Report Type: Spontaneous
  Country: DK (occurrence: DK)
  Receive Date: 20120706
  Receipt Date: 20130115
  Transmission Date: 20140127
  Serious: Yes (Hospitalization)
  Sender: FDA-Public Use
  Company Number: DK-PFIZER INC-2012151571

PATIENT
  Age: 46 Year
  Sex: Male
  Weight: 76 kg

DRUGS (17)
  1. RAPAMUNE [Suspect]
     Indication: PROPHYLAXIS AGAINST TRANSPLANT REJECTION
     Dosage: 2 MG, 1X/DAY
     Route: 048
     Dates: start: 20120302, end: 20120603
  2. RAPAMUNE [Suspect]
     Dosage: 1.5 MG, 1X/DAY
     Route: 048
     Dates: start: 20110531, end: 20120301
  3. PANTOPRAZOL [Concomitant]
     Dosage: 5 MG, 1X/DAY
     Dates: start: 20110830
  4. HJERTEMAGNYL ^DAK^ [Concomitant]
     Dosage: UNK
     Dates: start: 20110624
  5. AMLODIPINE [Concomitant]
     Dosage: 10 MG, 1X/DAY
     Dates: start: 20110830
  6. LOSARSTAD [Concomitant]
     Dosage: 50 MG, 1X/DAY
     Dates: start: 20110920
  7. SIMVASTATIN [Concomitant]
     Dosage: 20 MG, 1X/DAY
     Dates: start: 20111115, end: 20120612
  8. KETOCONAZOLE [Concomitant]
  9. PREDNISOLON [Concomitant]
  10. VEPICOMBIN [Concomitant]
  11. PAMOL [Concomitant]
  12. IMOCLONE [Concomitant]
  13. NASONEX [Concomitant]
  14. FURIX [Concomitant]
     Dosage: 40 MG, 1X/DAY
  15. NIFEDIPINE [Concomitant]
     Dosage: 120 MG, 1X/DAY
  16. CIPROFLOXACIN [Concomitant]
     Dosage: 500 MG, 2X/DAY
     Dates: start: 20111220, end: 20120302
  17. HYDERM [Concomitant]
     Dosage: UNK
     Dates: start: 20120302, end: 20120316

REACTIONS (2)
  - Dandruff [Recovering/Resolving]
  - Muscle fatigue [Recovered/Resolved]
